FAERS Safety Report 8968218 (Version 1)
Quarter: 2012Q4

REPORT INFORMATION
  Report Type: Spontaneous
  Country: DE (occurrence: None)
  Receive Date: 20121210
  Receipt Date: 20121210
  Transmission Date: 20130627
  Serious: Yes (Other)
  Sender: FDA-Public Use
  Company Number: AUR-APL-2012-05120

PATIENT
  Age: 83 Year
  Sex: Male

DRUGS (5)
  1. SIMVASTATIN (SIMVASTATIN) [Suspect]
     Indication: MYOCARDIAL INFARCTION
     Dosage: 20 mg (20 mg, 1 in 1 D) , Oral
     Route: 048
     Dates: start: 201202
  2. BRILIQUE [Suspect]
     Indication: MYOCARDIAL INFARCTION
     Dosage: 180 mg (90 mg, 2 in 1 D) , Oral
     Route: 048
     Dates: start: 201202
  3. ACETYLSALICYLIC ACID [Suspect]
     Indication: MYOCARDIAL INFARCTION
     Dosage: 100 mg (100 mg, 1 in 1 D) , Oral
     Route: 048
     Dates: start: 201202
  4. METOPROLOL (METOPROLOL 02/ /2012 - [Concomitant]
  5. DELIX (RAMIPRIL) [Concomitant]

REACTIONS (3)
  - Subdural haematoma [None]
  - Fall [None]
  - Hemiparesis [None]
